FAERS Safety Report 9862414 (Version 1)
Quarter: 2014Q1

REPORT INFORMATION
  Report Type: Spontaneous
  Country: US (occurrence: US)
  Receive Date: 20140203
  Receipt Date: 20140203
  Transmission Date: 20141002
  Serious: No
  Sender: FDA-Public Use
  Company Number: US-BAYER-2014-016795

PATIENT
  Age: 68 Year
  Sex: Male
  Weight: 124.72 kg

DRUGS (3)
  1. ALEVE TABLET [Suspect]
     Indication: ARTHRITIS
     Dosage: 1 OR 2 , PRN
     Route: 048
     Dates: start: 201306
  2. OSTEO BI-FLEX [Concomitant]
  3. LISINOPRIL [Concomitant]

REACTIONS (3)
  - Chest pain [Recovered/Resolved]
  - Chest discomfort [Recovered/Resolved]
  - Heart rate increased [Recovered/Resolved]
